FAERS Safety Report 10211347 (Version 2)
Quarter: 2014Q3

REPORT INFORMATION
  Report Type: Spontaneous
  Country: US (occurrence: US)
  Receive Date: 20140602
  Receipt Date: 20140711
  Transmission Date: 20150326
  Serious: Yes (Hospitalization, Other)
  Sender: FDA-Public Use
  Company Number: US-INCYTE CORPORATION-2014IN001493

PATIENT
  Sex: Female

DRUGS (1)
  1. JAKAFI [Suspect]
     Active Substance: RUXOLITINIB
     Indication: MYELOFIBROSIS
     Dosage: 20 MG, BID
     Route: 048
     Dates: start: 20131213

REACTIONS (13)
  - Gastrointestinal haemorrhage [Recovered/Resolved]
  - Weight decreased [Unknown]
  - Retroperitoneal lymphadenopathy [Unknown]
  - Joint swelling [Unknown]
  - Fatigue [Unknown]
  - Dyspnoea exertional [Unknown]
  - Leiomyoma [Unknown]
  - Azotaemia [Unknown]
  - Anaemia [Unknown]
  - White blood cell count decreased [Unknown]
  - Pancytopenia [Unknown]
  - Arthralgia [Unknown]
  - Abdominal distension [Unknown]
